FAERS Safety Report 14639840 (Version 2)
Quarter: 2025Q2

REPORT INFORMATION
  Report Type: Spontaneous
  Country: US (occurrence: US)
  Receive Date: 20180315
  Receipt Date: 20250502
  Transmission Date: 20250716
  Serious: Yes (Other)
  Sender: BAYER HEALTHCARE LLC
  Company Number: US-BAYER-2018-044334

PATIENT
  Sex: Female

DRUGS (5)
  1. ALEVE [Suspect]
     Active Substance: NAPROXEN SODIUM
     Dates: start: 201708, end: 20170822
  2. METHOTREXATE [Concomitant]
     Active Substance: METHOTREXATE
  3. HYDROXYCHLOROQUINE [Concomitant]
     Active Substance: HYDROXYCHLOROQUINE
     Dates: start: 2017
  4. PREDNISONE [Concomitant]
     Active Substance: PREDNISONE
     Dates: start: 2017
  5. FELDENE [Concomitant]
     Active Substance: PIROXICAM
     Dates: start: 2017

REACTIONS (1)
  - Rheumatoid arthritis [None]
